FAERS Safety Report 6573731-5 (Version None)
Quarter: 2010Q1

REPORT INFORMATION
  Report Type: 
  Country: None (occurrence: None)
  Receive Date: 20100208
  Receipt Date: 20100203
  Transmission Date: 20100710
  Serious: Yes (Other)
  Sender: FDA-Public Use
  Company Number: A0843294A

PATIENT
  Sex: Female

DRUGS (1)
  1. LAMICTAL [Suspect]
     Indication: DRUG USE FOR UNKNOWN INDICATION
     Route: 065

REACTIONS (4)
  - BIOPSY UTERUS [None]
  - RECTAL HAEMORRHAGE [None]
  - URETERIC HAEMORRHAGE [None]
  - VAGINAL HAEMORRHAGE [None]
